FAERS Safety Report 25268510 (Version 1)
Quarter: 2025Q2

REPORT INFORMATION
  Report Type: Spontaneous
  Country: JP (occurrence: JP)
  Receive Date: 20250505
  Receipt Date: 20250505
  Transmission Date: 20250717
  Serious: Yes (Hospitalization, Other)
  Sender: OTSUKA
  Company Number: JP-OTSUKA-2024_034707

PATIENT
  Age: 22 Year
  Sex: Female

DRUGS (2)
  1. REXULTI [Suspect]
     Active Substance: BREXPIPRAZOLE
     Indication: Depression
     Dosage: 1 MG/DAY
     Route: 048
     Dates: end: 20241031
  2. PAROXETINE HYDROCHLORIDE [Suspect]
     Active Substance: PAROXETINE HYDROCHLORIDE
     Indication: Product used for unknown indication
     Route: 048

REACTIONS (6)
  - Skull fracture [Recovering/Resolving]
  - Pelvic fracture [Recovering/Resolving]
  - Multiple fractures [Recovering/Resolving]
  - Lower limb fracture [Recovering/Resolving]
  - Suicidal ideation [Recovered/Resolved with Sequelae]
  - Suicide attempt [Recovered/Resolved with Sequelae]

NARRATIVE: CASE EVENT DATE: 20240101
